FAERS Safety Report 15633873 (Version 2)
Quarter: 2018Q4

REPORT INFORMATION
  Report Type: Spontaneous
  Country: US (occurrence: US)
  Receive Date: 20181119
  Receipt Date: 20181219
  Transmission Date: 20190205
  Serious: Yes (Hospitalization)
  Sender: FDA-Public Use
  Company Number: US-VERTEX PHARMACEUTICALS-2018-007968

PATIENT
  Age: 18 Year
  Sex: Female

DRUGS (17)
  1. FLUTICASONE. [Concomitant]
     Active Substance: FLUTICASONE
  2. BETHKIS [Suspect]
     Active Substance: TOBRAMYCIN
     Indication: CYSTIC FIBROSIS
     Dosage: 300 MG/ 4 ML, BID
     Route: 048
     Dates: start: 20150319
  3. ORKAMBI [Suspect]
     Active Substance: IVACAFTOR\LUMACAFTOR
     Indication: CYSTIC FIBROSIS
     Dosage: 400/250 MG, BID
     Route: 048
     Dates: start: 20160219
  4. DEKA [Concomitant]
  5. LEVOFLOXACIN. [Concomitant]
     Active Substance: LEVOFLOXACIN
  6. OMEPRAZOLE. [Concomitant]
     Active Substance: OMEPRAZOLE
  7. RANITIDINE. [Concomitant]
     Active Substance: RANITIDINE
  8. DULOXETINE. [Concomitant]
     Active Substance: DULOXETINE
  9. PROVENTIL [Concomitant]
     Active Substance: ALBUTEROL
  10. PULMOZYME [Concomitant]
     Active Substance: DORNASE ALFA
  11. SODIUM CHLORIDE. [Concomitant]
     Active Substance: SODIUM CHLORIDE
  12. LANTUS [Concomitant]
     Active Substance: INSULIN GLARGINE
  13. SUMATRIPTAN. [Concomitant]
     Active Substance: SUMATRIPTAN
  14. VITAMIN D3 [Concomitant]
     Active Substance: CHOLECALCIFEROL
  15. ZENPEP [Concomitant]
     Active Substance: PANCRELIPASE AMYLASE\PANCRELIPASE LIPASE\PANCRELIPASE PROTEASE
  16. TRIAMCINOLON                       /00031901/ [Concomitant]
  17. CLINDAMYCIN. [Concomitant]
     Active Substance: CLINDAMYCIN

REACTIONS (3)
  - Pneumonia [Unknown]
  - Lung abscess [Unknown]
  - Treatment noncompliance [Unknown]

NARRATIVE: CASE EVENT DATE: 2016
